FAERS Safety Report 10203662 (Version 1)
Quarter: 2014Q2

REPORT INFORMATION
  Report Type: Spontaneous
  Country: PE (occurrence: PE)
  Receive Date: 20140529
  Receipt Date: 20140529
  Transmission Date: 20141212
  Serious: Yes (Hospitalization)
  Sender: FDA-Public Use
  Company Number: PE-SA-2014SA069436

PATIENT
  Age: 53 Year
  Sex: Male
  Weight: 70 kg

DRUGS (6)
  1. FABRAZYME [Suspect]
     Indication: FABRY^S DISEASE
     Route: 042
     Dates: start: 201012
  2. RANITIDINE [Concomitant]
     Dates: start: 201405, end: 201405
  3. METHYLDOPA [Concomitant]
     Indication: HYPERTENSION
  4. NIFEDIPINE [Concomitant]
     Indication: HYPERTENSION
  5. CHLORPHENIRAMINE [Concomitant]
     Indication: PREMEDICATION
     Route: 048
  6. ACETAMINOPHEN [Concomitant]
     Indication: PREMEDICATION
     Route: 048

REACTIONS (3)
  - Peripheral swelling [Recovering/Resolving]
  - Condition aggravated [Recovering/Resolving]
  - Pain in extremity [Recovering/Resolving]
